FAERS Safety Report 24313544 (Version 1)
Quarter: 2024Q3

REPORT INFORMATION
  Report Type: Spontaneous
  Country: FR (occurrence: FR)
  Receive Date: 20240912
  Receipt Date: 20240912
  Transmission Date: 20241017
  Serious: Yes (Other)
  Sender: B BRAUN
  Company Number: FR-B.Braun Medical Inc.-2161503

PATIENT
  Age: 41 Year
  Sex: Male

DRUGS (9)
  1. ACETAMINOPHEN [Suspect]
     Active Substance: ACETAMINOPHEN
  2. ALCOHOL [Suspect]
     Active Substance: ALCOHOL
  3. DRONABINOL [Suspect]
     Active Substance: DRONABINOL
  4. COCAINE [Suspect]
     Active Substance: COCAINE
  5. MIDOMAFETAMINE [Suspect]
     Active Substance: MIDOMAFETAMINE
  6. CANNABIGEROL\HERBALS [Suspect]
     Active Substance: CANNABIGEROL\HERBALS
  7. CANNABIS SATIVA SUBSP. INDICA TOP [Suspect]
     Active Substance: CANNABIS SATIVA SUBSP. INDICA TOP
  8. CAFFEINE [Suspect]
     Active Substance: CAFFEINE
  9. KETAMINE [Suspect]
     Active Substance: KETAMINE

REACTIONS (6)
  - Suicidal ideation [Not Recovered/Not Resolved]
  - Feeling hot [Not Recovered/Not Resolved]
  - Thirst [Not Recovered/Not Resolved]
  - Visual impairment [Not Recovered/Not Resolved]
  - Feeling abnormal [Not Recovered/Not Resolved]
  - Drug abuse [Not Recovered/Not Resolved]
